FAERS Safety Report 7200432-2 (Version None)
Quarter: 2010Q4

REPORT INFORMATION
  Report Type: 
  Country: None (occurrence: None)
  Receive Date: 20101228
  Receipt Date: 20101220
  Transmission Date: 20110411
  Serious: Yes (Hospitalization)
  Sender: FDA-Public Use
  Company Number: FR-MERCK-1012FRA00123

PATIENT
  Age: 79 Year
  Sex: Female

DRUGS (7)
  1. EMEND [Suspect]
     Indication: PREMEDICATION
     Route: 048
     Dates: start: 20101006, end: 20101006
  2. CYCLOPHOSPHAMIDE [Suspect]
     Indication: OVARIAN CANCER
     Route: 041
     Dates: start: 20101006, end: 20101006
  3. CISPLATIN [Suspect]
     Indication: OVARIAN CANCER
     Route: 041
     Dates: start: 20101006, end: 20101006
  4. CISPLATIN [Suspect]
     Route: 065
     Dates: start: 20101007, end: 20101007
  5. CISPLATIN [Suspect]
     Route: 065
     Dates: start: 20101008, end: 20101008
  6. METHYLPREDNISOLONE [Suspect]
     Indication: PREMEDICATION
     Route: 042
     Dates: start: 20101006, end: 20101006
  7. ONDANSETRON HYDROCHLORIDE [Suspect]
     Indication: PREMEDICATION
     Route: 042
     Dates: start: 20101006, end: 20101006

REACTIONS (2)
  - ERYTHEMA [None]
  - PARAESTHESIA [None]
